FAERS Safety Report 7644816-7 (Version None)
Quarter: 2011Q3

REPORT INFORMATION
  Report Type: 
  Country: None (occurrence: None)
  Receive Date: 20110729
  Receipt Date: 20110720
  Transmission Date: 20111222
  Serious: No
  Sender: FDA-Public Use
  Company Number: US-JNJFOC-20110709220

PATIENT
  Age: 3 Decade
  Sex: Male

DRUGS (4)
  1. COGENTIN [Concomitant]
     Indication: MUSCLE RIGIDITY
     Route: 048
     Dates: start: 20110601
  2. INVEGA SUSTENNA [Suspect]
     Indication: SCHIZOPHRENIA
     Dosage: FIRST DOSE
     Route: 030
     Dates: start: 20110601, end: 20110601
  3. INVEGA SUSTENNA [Suspect]
     Dosage: SECOND DOSE
     Route: 030
     Dates: start: 20110601, end: 20110601
  4. INVEGA SUSTENNA [Suspect]
     Route: 030
     Dates: start: 20110701

REACTIONS (4)
  - COGWHEEL RIGIDITY [None]
  - MUSCLE RIGIDITY [None]
  - DROOLING [None]
  - MUSCLE SPASMS [None]
